FAERS Safety Report 11831014 (Version 1)
Quarter: 2015Q4

REPORT INFORMATION
  Report Type: Report from Study
  Country: AU (occurrence: AU)
  Receive Date: 20151214
  Receipt Date: 20151214
  Transmission Date: 20160305
  Serious: Yes (Other)
  Sender: FDA-Public Use
  Company Number: PHHY2015AU147634

PATIENT
  Age: 20 Year
  Sex: Male

DRUGS (1)
  1. CLOZARIL [Suspect]
     Active Substance: CLOZAPINE
     Indication: SCHIZOPHRENIA
     Dosage: 525 MG, QD
     Route: 048
     Dates: start: 20140507

REACTIONS (2)
  - Atrial fibrillation [Recovered/Resolved]
  - Ventricular extrasystoles [Recovered/Resolved]

NARRATIVE: CASE EVENT DATE: 20151105
